FAERS Safety Report 10008897 (Version 1)
Quarter: 2014Q1

REPORT INFORMATION
  Report Type: Spontaneous
  Country: TR (occurrence: TR)
  Receive Date: 20140313
  Receipt Date: 20140313
  Transmission Date: 20141002
  Serious: Yes (Hospitalization)
  Sender: FDA-Public Use
  Company Number: PHHY2014TR027722

PATIENT
  Age: 37 Year
  Sex: Female

DRUGS (1)
  1. CEFPODOXIME PROXETIL [Suspect]
     Indication: URINARY TRACT INFECTION
     Dosage: 100 MG, Q12H
     Route: 048

REACTIONS (19)
  - Tubulointerstitial nephritis [Recovered/Resolved]
  - Oliguria [Recovered/Resolved]
  - Blood pressure increased [Recovered/Resolved]
  - Renal failure acute [Recovered/Resolved]
  - Urine output decreased [Recovered/Resolved]
  - Rales [Recovered/Resolved]
  - Renal tubular atrophy [Recovered/Resolved]
  - Dyspnoea [Recovered/Resolved]
  - Asthenia [Recovered/Resolved]
  - Kidney fibrosis [Recovered/Resolved]
  - Jugular vein distension [Recovered/Resolved]
  - Leukocytosis [Recovered/Resolved]
  - Haemolytic anaemia [Recovered/Resolved]
  - Oedema peripheral [Recovered/Resolved]
  - Haematuria [Recovered/Resolved]
  - Anaemia [Recovered/Resolved]
  - Anisocytosis [Recovered/Resolved]
  - Nausea [Recovered/Resolved]
  - Vomiting [Recovered/Resolved]
